FAERS Safety Report 4308559-X (Version None)
Quarter: 2004Q1

REPORT INFORMATION
  Report Type: 
  Country: None (occurrence: None)
  Receive Date: 20040226
  Receipt Date: 20030507
  Transmission Date: 20041129
  Serious: Yes (Hospitalization)
  Sender: FDA-Public Use
  Company Number: 2003156685US

PATIENT
  Age: 77 Year
  Sex: Female

DRUGS (9)
  1. CELEBREX [Suspect]
     Indication: ARTHRITIS
     Dosage: ORAL
     Route: 048
  2. CHONDROITIN SULFATE (CHONDROITIN SULFATE) [Suspect]
  3. MSM SULFADIMIDINE() [Suspect]
  4. GLUCOSAMINE (GLUCOSAMINE) [Suspect]
  5. DETROL [Concomitant]
  6. TAMOXIFEN [Concomitant]
  7. LOTREL [Concomitant]
  8. METOPROLOL [Concomitant]
  9. ASPIRIN [Concomitant]

REACTIONS (1)
  - GASTROINTESTINAL HAEMORRHAGE [None]
